FAERS Safety Report 10597489 (Version 6)
Quarter: 2015Q2

REPORT INFORMATION
  Report Type: Report from Study
  Country: CA (occurrence: CA)
  Receive Date: 20141121
  Receipt Date: 20150409
  Transmission Date: 20150821
  Serious: Yes (Hospitalization, Other)
  Sender: FDA-Public Use
  Company Number: CA-ROCHE-1366027

PATIENT
  Age: 17 Year
  Sex: Female
  Weight: 64 kg

DRUGS (11)
  1. RITUXAN [Suspect]
     Active Substance: RITUXIMAB
     Indication: NEUROPSYCHIATRIC LUPUS
  2. LUPRON [Concomitant]
     Active Substance: LEUPROLIDE ACETATE
     Route: 030
  3. VYVANSE [Concomitant]
     Active Substance: LISDEXAMFETAMINE DIMESYLATE
  4. PREVACID [Concomitant]
     Active Substance: LANSOPRAZOLE
  5. RITUXAN [Suspect]
     Active Substance: RITUXIMAB
     Indication: DERMATOMYOSITIS
     Dosage: DAY 1 DAY 15
     Route: 042
     Dates: start: 20140313, end: 20141204
  6. DIPHENHYDRAMINE HCL [Concomitant]
     Active Substance: DIPHENHYDRAMINE HYDROCHLORIDE
     Indication: PREMEDICATION
     Route: 048
     Dates: start: 20140313
  7. ACETAMINOPHEN. [Concomitant]
     Active Substance: ACETAMINOPHEN
     Indication: PREMEDICATION
     Route: 048
     Dates: start: 20140313
  8. RISEDRONATE [Concomitant]
     Active Substance: RISEDRONATE SODIUM
  9. PLAQUENIL [Concomitant]
     Active Substance: HYDROXYCHLOROQUINE SULFATE
  10. METHYLPREDNISOLONE. [Concomitant]
     Active Substance: METHYLPREDNISOLONE
     Indication: PREMEDICATION
     Route: 042
     Dates: start: 20140313
  11. DOMPERIDONE [Concomitant]
     Active Substance: DOMPERIDONE

REACTIONS (16)
  - Hypotension [Unknown]
  - Malaise [Unknown]
  - Injection site pain [Recovered/Resolved]
  - Off label use [Unknown]
  - Mental disorder [Unknown]
  - Throat irritation [Recovered/Resolved]
  - Anxiety [Unknown]
  - Memory impairment [Unknown]
  - Headache [Unknown]
  - White blood cell count decreased [Unknown]
  - Asthenia [Unknown]
  - Tachycardia [Unknown]
  - Drug ineffective [Unknown]
  - Dizziness [Recovered/Resolved]
  - Neuropsychiatric lupus [Not Recovered/Not Resolved]
  - Infusion related reaction [Unknown]

NARRATIVE: CASE EVENT DATE: 20140313
